FAERS Safety Report 8276069-3 (Version None)
Quarter: 2012Q2

REPORT INFORMATION
  Report Type: 
  Country: None (occurrence: None)
  Receive Date: 20120405
  Receipt Date: 20120329
  Transmission Date: 20120825
  Serious: Yes (Other)
  Sender: FDA-Public Use
  Company Number: 2012SP017735

PATIENT

DRUGS (2)
  1. PEGTINTRON [Suspect]
     Indication: PREGNANCY
  2. REBETOL [Suspect]
     Indication: PREGNANCY

REACTIONS (2)
  - EXPOSURE VIA FATHER [None]
  - CONGENITAL NEUROLOGICAL DISORDER [None]
